FAERS Safety Report 6402706-1 (Version None)
Quarter: 2009Q4

REPORT INFORMATION
  Report Type: 
  Country: None (occurrence: None)
  Receive Date: 20091009
  Receipt Date: 20090925
  Transmission Date: 20100525
  Serious: Yes (Other)
  Sender: FDA-Public Use
  Company Number: 001289

PATIENT
  Sex: Male
  Weight: 60 kg

DRUGS (4)
  1. NEUPRO [Suspect]
     Indication: PARKINSON'S DISEASE
     Dosage: 6 MG; TRANSDERMAL
     Route: 062
     Dates: start: 20090526, end: 20090702
  2. STALEVO 100 [Concomitant]
  3. SIFROL [Concomitant]
  4. MADOPAR [Concomitant]

REACTIONS (4)
  - APPLICATION SITE EROSION [None]
  - APPLICATION SITE IRRITATION [None]
  - APPLICATION SITE SCAB [None]
  - APPLICATION SITE VESICLES [None]
